FAERS Safety Report 19853747 (Version 1)
Quarter: 2021Q3

REPORT INFORMATION
  Report Type: Spontaneous
  Country: ES (occurrence: ES)
  Receive Date: 20210919
  Receipt Date: 20210919
  Transmission Date: 20211014
  Serious: Yes (Hospitalization, Other)
  Sender: FDA-Public Use
  Company Number: ES-CELLTRION INC.-2021ES012523

PATIENT

DRUGS (2)
  1. BENDAMUSTINE HYDROCHLORIDE. [Suspect]
     Active Substance: BENDAMUSTINE HYDROCHLORIDE
     Indication: CHRONIC LYMPHOCYTIC LEUKAEMIA
     Dosage: CYCLE; 100?90 MG/M2 ON DAYS (DAY 1?2 IN 28 DAY CYCLE),(4 CYCLES
     Route: 042
  2. RITUXIMAB. [Suspect]
     Active Substance: RITUXIMAB
     Indication: CHRONIC LYMPHOCYTIC LEUKAEMIA
     Dosage: 375 MG/M2, CYCLE ( ON DAY 1 IN 28 DAY CYCLE, 4 CYCLES)
     Route: 065

REACTIONS (9)
  - CD4 lymphocytes decreased [Unknown]
  - Staphylococcal bacteraemia [Unknown]
  - Device related infection [Unknown]
  - Escherichia infection [Unknown]
  - Product use issue [Unknown]
  - Septic shock [Recovered/Resolved]
  - Pneumococcal infection [Recovered/Resolved]
  - Staphylococcal infection [Unknown]
  - Febrile neutropenia [Unknown]
